FAERS Safety Report 5038097-0 (Version None)
Quarter: 2006Q2

REPORT INFORMATION
  Report Type: 
  Country: None (occurrence: None)
  Receive Date: 20060622
  Receipt Date: 20060605
  Transmission Date: 20061013
  Serious: Yes (Other)
  Sender: FDA-Public Use
  Company Number: CA200602003486

PATIENT
  Age: 10 Year
  Sex: Male
  Weight: 48.1 kg

DRUGS (6)
  1. STRATTERA [Suspect]
     Indication: ATTENTION DEFICIT/HYPERACTIVITY DISORDER
     Dosage: SEE IMAGE
     Dates: start: 20050701, end: 20051201
  2. STRATTERA [Suspect]
     Indication: ATTENTION DEFICIT/HYPERACTIVITY DISORDER
     Dosage: SEE IMAGE
     Dates: start: 20050101
  3. STRATTERA [Suspect]
     Indication: ATTENTION DEFICIT/HYPERACTIVITY DISORDER
     Dosage: SEE IMAGE
     Dates: start: 20050501
  4. STRATTERA [Suspect]
     Indication: ATTENTION DEFICIT/HYPERACTIVITY DISORDER
     Dosage: SEE IMAGE
     Dates: start: 20060101
  5. PROZAC [Suspect]
     Indication: ANXIETY
     Dosage: 20 MG, DAILY (1/D), ORAL
     Route: 048
     Dates: start: 20060101, end: 20060201
  6. SEROQUEL [Concomitant]

REACTIONS (16)
  - ABNORMAL BEHAVIOUR [None]
  - AGGRESSION [None]
  - ANOREXIA [None]
  - DEPRESSED MOOD [None]
  - DRUG HYPERSENSITIVITY [None]
  - DRUG INTERACTION [None]
  - DRUG TOXICITY [None]
  - DYSSTASIA [None]
  - FORMICATION [None]
  - HALLUCINATION [None]
  - INTENTIONAL SELF-INJURY [None]
  - NIGHTMARE [None]
  - PSYCHOTIC DISORDER [None]
  - RESTLESSNESS [None]
  - SOMNOLENCE [None]
  - WEIGHT DECREASED [None]
